FAERS Safety Report 15172523 (Version 1)
Quarter: 2018Q3

REPORT INFORMATION
  Report Type: Spontaneous
  Country: US (occurrence: US)
  Receive Date: 20180720
  Receipt Date: 20180720
  Transmission Date: 20181010
  Serious: Yes (Hospitalization)
  Sender: FDA-Public Use
  Company Number: US-WELLSPRINGPHARMA-2018-US-011797

PATIENT
  Age: 53 Year
  Sex: Female

DRUGS (1)
  1. BACTINE PAIN RELIEVING [Suspect]
     Active Substance: BENZALKONIUM CHLORIDE\LIDOCAINE HYDROCHLORIDE
     Route: 061
     Dates: start: 20180619, end: 20180619

REACTIONS (7)
  - Dyspnoea [Recovered/Resolved]
  - Oxygen saturation decreased [Recovered/Resolved]
  - Pruritus [None]
  - Pruritus [Recovered/Resolved]
  - Swelling face [None]
  - Allergic sinusitis [Recovered/Resolved]
  - Pharyngeal oedema [Recovered/Resolved]

NARRATIVE: CASE EVENT DATE: 20180619
